FAERS Safety Report 14180463 (Version 1)
Quarter: 2017Q4

REPORT INFORMATION
  Report Type: Spontaneous
  Country: US (occurrence: US)
  Receive Date: 20171110
  Receipt Date: 20171110
  Transmission Date: 20180321
  Serious: Yes (Other)
  Sender: FDA-Public Use
  Company Number: PHEH2017US035492

PATIENT
  Age: 81 Year
  Sex: Female

DRUGS (14)
  1. FASLODEX [Concomitant]
     Active Substance: FULVESTRANT
     Indication: BONE CANCER METASTATIC
     Dosage: 500 MG, ON DAYS 1, 15, 29 FOR CYCLE 1 AND THEN EVERY 28 DAYS
     Route: 030
  2. FLAXSEED [Concomitant]
     Active Substance: FLAX SEED
     Indication: PRODUCT USED FOR UNKNOWN INDICATION
     Dosage: 2 DF, QD
     Route: 048
     Dates: start: 20160607
  3. IBRANCE [Suspect]
     Active Substance: PALBOCICLIB
     Indication: BREAST CANCER METASTATIC
     Dosage: 1 DF, QD FOR 21 DAYS, OFF 7 DAYS
     Route: 048
     Dates: start: 20170727
  4. COQ10 [Concomitant]
     Active Substance: UBIDECARENONE
     Indication: PRODUCT USED FOR UNKNOWN INDICATION
     Dosage: 1 DF, QD
     Route: 048
     Dates: start: 20160607
  5. LETROZOLE. [Suspect]
     Active Substance: LETROZOLE
     Indication: PRODUCT USED FOR UNKNOWN INDICATION
     Dosage: UNK
     Route: 065
     Dates: start: 201406, end: 20170510
  6. LISINOPRIL. [Concomitant]
     Active Substance: LISINOPRIL
     Indication: PRODUCT USED FOR UNKNOWN INDICATION
     Dosage: TABLET ORAL DAILY, PRN, UNK
     Route: 048
     Dates: start: 20160912
  7. TRAMADOL. [Concomitant]
     Active Substance: TRAMADOL
     Indication: PAIN
     Dosage: 1 DF Q6H AND AN ADDITIONAL TAB AT NIGHT PRN
     Route: 048
     Dates: start: 20170813
  8. VITAMIN D3 [Concomitant]
     Active Substance: CHOLECALCIFEROL
     Indication: PRODUCT USED FOR UNKNOWN INDICATION
     Dosage: 1 DF, QD
     Route: 048
     Dates: start: 20160607
  9. IBRANCE [Suspect]
     Active Substance: PALBOCICLIB
     Indication: BREAST CANCER METASTATIC
     Dosage: 1 DF, QOD X 28 DAYS DUE TO BLOOD COUNTS
     Route: 048
     Dates: start: 20170830
  10. XGEVA [Concomitant]
     Active Substance: DENOSUMAB
     Indication: MUSCULOSKELETAL DISORDER
     Dosage: 120 MG, EVERY 28 DAYS X 12 CYCLES
     Route: 058
     Dates: start: 20160607
  11. CITRACAL [Concomitant]
     Active Substance: CALCIUM CITRATE
     Indication: PRODUCT USED FOR UNKNOWN INDICATION
     Dosage: 1 DF, BID
     Route: 048
     Dates: start: 20160607
  12. VITAMIN B12 [Concomitant]
     Active Substance: CYANOCOBALAMIN
     Indication: PRODUCT USED FOR UNKNOWN INDICATION
     Dosage: PER PT 1, QD
     Route: 048
     Dates: start: 20160607
  13. CRANBERRY. [Concomitant]
     Active Substance: CRANBERRY
     Indication: PRODUCT USED FOR UNKNOWN INDICATION
     Dosage: 1 DF, QD IN THE PM
     Route: 048
     Dates: start: 20160912
  14. MULTIVIT [Concomitant]
     Active Substance: VITAMINS
     Indication: PRODUCT USED FOR UNKNOWN INDICATION
     Dosage: 1 DF, QD
     Route: 048

REACTIONS (15)
  - Blood sodium decreased [Unknown]
  - Fatigue [Unknown]
  - Pollakiuria [Unknown]
  - Myalgia [Unknown]
  - Nausea [Unknown]
  - Disease progression [Unknown]
  - Neuropathy peripheral [Unknown]
  - Metastases to bone [Unknown]
  - Nocturia [Unknown]
  - Arthralgia [Unknown]
  - Joint range of motion decreased [Unknown]
  - Pain [Unknown]
  - Asthenia [Unknown]
  - Decreased appetite [Unknown]
  - Back pain [Unknown]

NARRATIVE: CASE EVENT DATE: 20170502
